FAERS Safety Report 5105740-7 (Version None)
Quarter: 2006Q3

REPORT INFORMATION
  Report Type: 
  Country: None (occurrence: None)
  Receive Date: 20060915
  Receipt Date: 20060905
  Transmission Date: 20061208
  Serious: Yes (Hospitalization)
  Sender: FDA-Public Use
  Company Number: 2006SE04823

PATIENT
  Age: 15815 Day
  Sex: Female
  Weight: 62 kg

DRUGS (2)
  1. ZOLADEX [Suspect]
     Indication: PREOPERATIVE CARE
     Route: 058
     Dates: start: 20060817, end: 20060817
  2. ZOLADEX [Suspect]
     Indication: UTERINE HAEMORRHAGE
     Route: 058
     Dates: start: 20060817, end: 20060817

REACTIONS (3)
  - FACE OEDEMA [None]
  - OEDEMA PERIPHERAL [None]
  - PETECHIAE [None]
